FAERS Safety Report 9270077 (Version 2)
Quarter: 2016Q4

REPORT INFORMATION
  Report Type: Spontaneous
  Country: VN (occurrence: VN)
  Receive Date: 20130503
  Receipt Date: 20161005
  Transmission Date: 20170207
  Serious: Yes (Other)
  Sender: FDA-Public Use
  Company Number: VN-ASTRAZENECA-2013SE28876

PATIENT
  Age: 15394 Day
  Sex: Male
  Weight: 45 kg

DRUGS (1)
  1. MERRONEM [Suspect]
     Active Substance: MEROPENEM
     Indication: SEPSIS
     Dosage: 3.0G EVERY 8 - 12 HOURS
     Route: 041
     Dates: start: 20130415, end: 20130418

REACTIONS (3)
  - Pyrexia [Recovered/Resolved]
  - Seizure [Recovered/Resolved]
  - Multiple organ dysfunction syndrome [Unknown]

NARRATIVE: CASE EVENT DATE: 20130419
